FAERS Safety Report 11180435 (Version 2)
Quarter: 2015Q3

REPORT INFORMATION
  Report Type: Spontaneous
  Country: US (occurrence: US)
  Receive Date: 20150611
  Receipt Date: 20150728
  Transmission Date: 20151125
  Serious: Yes (Hospitalization, Other)
  Sender: FDA-Public Use
  Company Number: US-JNJFOC-20150600691

PATIENT
  Sex: Female

DRUGS (2)
  1. HCTZ [Concomitant]
     Active Substance: HYDROCHLOROTHIAZIDE
     Indication: HYPERTENSION
     Route: 065
  2. TOPAMAX [Suspect]
     Active Substance: TOPIRAMATE
     Indication: TREMOR
     Route: 048
     Dates: start: 2008, end: 201410

REACTIONS (7)
  - Malaise [Recovered/Resolved]
  - Blood test abnormal [Recovered/Resolved]
  - Visual acuity reduced [Not Recovered/Not Resolved]
  - Diarrhoea [Not Recovered/Not Resolved]
  - Respiratory tract infection [Recovered/Resolved]
  - Off label use [Unknown]
  - Renal cancer [Recovering/Resolving]

NARRATIVE: CASE EVENT DATE: 2008
